FAERS Safety Report 6639085-0 (Version None)
Quarter: 2010Q1

REPORT INFORMATION
  Report Type: 
  Country: None (occurrence: None)
  Receive Date: 20100312
  Receipt Date: 20100305
  Transmission Date: 20100710
  Serious: Yes (Hospitalization, Other)
  Sender: FDA-Public Use
  Company Number: 8019651

PATIENT
  Sex: Female
  Weight: 54.4 kg

DRUGS (4)
  1. CERTOLIZUMAB PEGOL (CDP870) [Suspect]
     Indication: CROHN'S DISEASE
     Dosage: (400 MG 1X/2 WEEKS, - NR OF DOSES :6 SUBCUTANEOUS), (400 MG 1X/2 WEEKS SUBCUTANEOUS)
     Route: 058
     Dates: start: 20061006, end: 20070201
  2. CERTOLIZUMAB PEGOL (CDP870) [Suspect]
     Indication: CROHN'S DISEASE
     Dosage: (400 MG 1X/2 WEEKS, - NR OF DOSES :6 SUBCUTANEOUS), (400 MG 1X/2 WEEKS SUBCUTANEOUS)
     Route: 058
     Dates: start: 20070215
  3. PREDNISONE TAB [Concomitant]
  4. SPERMICIDE [Concomitant]

REACTIONS (6)
  - ANAL ABSCESS [None]
  - BARTHOLINITIS [None]
  - DIARRHOEA [None]
  - HAEMATOCHEZIA [None]
  - PERINEAL FISTULA [None]
  - PERINEAL INFECTION [None]
